FAERS Safety Report 25907986 (Version 1)
Quarter: 2025Q4

REPORT INFORMATION
  Report Type: Spontaneous
  Country: US (occurrence: US)
  Receive Date: 20251010
  Receipt Date: 20251010
  Transmission Date: 20260118
  Serious: No
  Sender: ROCHE
  Company Number: US-ROCHE-10000400338

PATIENT
  Age: 35 Year
  Sex: Female
  Weight: 65.77 kg

DRUGS (2)
  1. XOLAIR [Suspect]
     Active Substance: OMALIZUMAB
     Indication: Urticaria
     Route: 058
  2. PROGESTERONE [Concomitant]
     Active Substance: PROGESTERONE

REACTIONS (7)
  - Underdose [Unknown]
  - Off label use [Unknown]
  - Injection site reaction [Recovered/Resolved]
  - Incorrect disposal of product [Unknown]
  - Exposure via skin contact [Recovered/Resolved]
  - Maternal exposure timing unspecified [Unknown]
  - Device malfunction [Unknown]

NARRATIVE: CASE EVENT DATE: 20250928
